FAERS Safety Report 21199164 (Version 1)
Quarter: 2022Q3

REPORT INFORMATION
  Report Type: Spontaneous
  Country: US (occurrence: US)
  Receive Date: 20220811
  Receipt Date: 20220811
  Transmission Date: 20221026
  Serious: No
  Sender: FDA-Public Use
  Company Number: US-TEVA-2022-US-2059748

PATIENT
  Sex: Male

DRUGS (1)
  1. PROAIR HFA [Suspect]
     Active Substance: ALBUTEROL SULFATE
     Indication: Product used for unknown indication
     Route: 055

REACTIONS (5)
  - Cough [Unknown]
  - Wheezing [Unknown]
  - Device malfunction [Unknown]
  - Product cleaning inadequate [Unknown]
  - Circumstance or information capable of leading to medication error [Unknown]
